FAERS Safety Report 7098531-1 (Version None)
Quarter: 2010Q4

REPORT INFORMATION
  Report Type: 
  Country: None (occurrence: None)
  Receive Date: 20101110
  Receipt Date: 20101110
  Transmission Date: 20110411
  Serious: Yes (Life-Threatening, Hospitalization, Other)
  Sender: FDA-Public Use
  Company Number: None

PATIENT
  Age: 52 Year
  Sex: Female
  Weight: 76.2043 kg

DRUGS (1)
  1. TREXIMET [Suspect]
     Indication: HEADACHE
     Dates: start: 20070805, end: 20070805

REACTIONS (3)
  - ACUTE MYOCARDIAL INFARCTION [None]
  - PALPITATIONS [None]
  - PRODUCT LABEL ISSUE [None]
